FAERS Safety Report 26097883 (Version 1)
Quarter: 2025Q4

REPORT INFORMATION
  Report Type: Spontaneous
  Country: IN (occurrence: IN)
  Receive Date: 20251127
  Receipt Date: 20251127
  Transmission Date: 20260117
  Serious: Yes (Other)
  Sender: NOVARTIS
  Company Number: IN-002147023-NVSC2025IN180073

PATIENT
  Age: 62 Year
  Sex: Male

DRUGS (2)
  1. IMATINIB [Suspect]
     Active Substance: IMATINIB
     Indication: Chronic myeloid leukaemia
     Dosage: 300 MG, QD
     Route: 048
     Dates: start: 20240912
  2. IMATINIB [Suspect]
     Active Substance: IMATINIB
     Dosage: 400 MG, QD
     Route: 048
     Dates: start: 20241230

REACTIONS (3)
  - Philadelphia chromosome positive [Unknown]
  - Drug tolerance [Unknown]
  - Disease in remission [Unknown]

NARRATIVE: CASE EVENT DATE: 20250530
